FAERS Safety Report 14267120 (Version 1)
Quarter: 2017Q4

REPORT INFORMATION
  Report Type: Spontaneous
  Country: US (occurrence: US)
  Receive Date: 20171211
  Receipt Date: 20171211
  Transmission Date: 20180321
  Serious: No
  Sender: FDA-Public Use
  Company Number: US-PFIZER INC-2017524862

PATIENT
  Age: 55 Year
  Sex: Female

DRUGS (3)
  1. SOMATULINE [Suspect]
     Active Substance: LANREOTIDE ACETATE
     Dosage: 60 MG, MONTHLY
     Route: 058
  2. PEGVISOMANT [Suspect]
     Active Substance: PEGVISOMANT
     Dosage: 10 MG, DAILY
     Route: 058
     Dates: start: 201703, end: 2017
  3. SOMATULINE [Suspect]
     Active Substance: LANREOTIDE ACETATE
     Dosage: UNK

REACTIONS (3)
  - Headache [Not Recovered/Not Resolved]
  - Arthralgia [Not Recovered/Not Resolved]
  - Influenza like illness [Unknown]
